FAERS Safety Report 6169412-2 (Version None)
Quarter: 2009Q2

REPORT INFORMATION
  Report Type: 
  Country: None (occurrence: None)
  Receive Date: 20090428
  Receipt Date: 20090422
  Transmission Date: 20091009
  Serious: Yes (Death, Hospitalization)
  Sender: FDA-Public Use
  Company Number: SE-WYE-G03557409

PATIENT
  Sex: Female

DRUGS (6)
  1. TAZOCIN [Suspect]
     Indication: APPENDICITIS
     Route: 042
     Dates: start: 20090227, end: 20090301
  2. TAZOCIN [Suspect]
     Dosage: UNKNOWN
     Route: 042
     Dates: start: 20090127, end: 20090205
  3. CEFAMOX [Suspect]
     Dosage: UNKNOWN
     Route: 048
     Dates: start: 20090302, end: 20090305
  4. CIPROFLOXACIN HCL [Suspect]
     Indication: APPENDICITIS
     Dosage: UNKNOWN
     Route: 048
     Dates: start: 20090218, end: 20090226
  5. METRONIDAZOLE [Suspect]
     Dosage: UNKNOWN
     Route: 048
     Dates: start: 20090218, end: 20090226
  6. METRONIDAZOLE [Suspect]
     Dosage: UNKOWN
     Route: 048
     Dates: start: 20090302, end: 20090304

REACTIONS (2)
  - HEPATIC FAILURE [None]
  - MIXED LIVER INJURY [None]
